FAERS Safety Report 8244844-7 (Version None)
Quarter: 2012Q1

REPORT INFORMATION
  Report Type: 
  Country: None (occurrence: None)
  Receive Date: 20120329
  Receipt Date: 20110609
  Transmission Date: 20120608
  Serious: No
  Sender: FDA-Public Use
  Company Number: US-MYLANLABS-2011S1012176

PATIENT
  Age: 50 Year
  Sex: Female
  Weight: 79.83 kg

DRUGS (3)
  1. FENTANYL-100 [Suspect]
     Indication: RHEUMATOID ARTHRITIS
     Dosage: CHANGED Q72H
     Route: 062
     Dates: start: 20080101
  2. OXYCODONE HCL [Concomitant]
     Indication: BREAKTHROUGH PAIN
  3. FENTANYL-100 [Suspect]
     Dosage: CHANGED Q72H
     Route: 062
     Dates: start: 20090101

REACTIONS (3)
  - APPLICATION SITE PAIN [None]
  - APPLICATION SITE ERYTHEMA [None]
  - APPLICATION SITE PRURITUS [None]
